FAERS Safety Report 8940981 (Version 1)
Quarter: 2012Q4

REPORT INFORMATION
  Report Type: 
  Country: OM (occurrence: OM)
  Receive Date: 20121203
  Receipt Date: 20121203
  Transmission Date: 20130627
  Serious: Yes (Other)
  Sender: FDA-Public Use
  Company Number: OM-ROCHE-1162474

PATIENT
  Age: 10 Year
  Sex: Female

DRUGS (3)
  1. XOLAIR [Suspect]
     Indication: ASTHMA
     Route: 058
     Dates: start: 20120923, end: 20121113
  2. CORTICOSTEROID (UNK INGREDIENTS) [Concomitant]
     Route: 065
  3. LEUKOTRIENE ANTAGONIST [Concomitant]

REACTIONS (5)
  - Anxiety [Recovered/Resolved]
  - Flushing [Recovered/Resolved]
  - Tachycardia [Recovered/Resolved]
  - Tachypnoea [Recovered/Resolved]
  - Hypertension [Recovered/Resolved]
